FAERS Safety Report 4426479-7 (Version None)
Quarter: 2004Q3

REPORT INFORMATION
  Report Type: 
  Country: None (occurrence: None)
  Receive Date: 20040816
  Receipt Date: 20040804
  Transmission Date: 20050211
  Serious: Yes (Life-Threatening)
  Sender: FDA-Public Use
  Company Number: JP-JNJFOC-20040608639

PATIENT
  Sex: Male

DRUGS (8)
  1. REMICADE [Suspect]
     Route: 042
  2. REMICADE [Suspect]
     Route: 042
  3. REMICADE [Suspect]
     Route: 042
  4. REMICADE [Suspect]
     Indication: RHEUMATOID ARTHRITIS
     Route: 042
  5. RHEUMATREX [Suspect]
  6. RHEUMATREX [Suspect]
  7. RHEUMATREX [Suspect]
     Indication: RHEUMATOID ARTHRITIS
  8. FOLIAMIN [Concomitant]

REACTIONS (2)
  - LUNG NEOPLASM MALIGNANT [None]
  - THROMBOCYTOPENIA [None]
